FAERS Safety Report 9859267 (Version 2)
Quarter: 2014Q2

REPORT INFORMATION
  Report Type: Spontaneous
  Country: US (occurrence: None)
  Receive Date: 20140129
  Receipt Date: 20140407
  Transmission Date: 20141212
  Serious: Yes (Disabling)
  Sender: FDA-Public Use
  Company Number: 2014-US-000639

PATIENT
  Age: 69 Year
  Sex: Male

DRUGS (3)
  1. XYREM [Suspect]
     Indication: NARCOLEPSY
     Route: 048
     Dates: start: 201008, end: 2010
  2. XYREM [Suspect]
     Indication: HYPERSOMNIA
     Route: 048
     Dates: start: 201008, end: 2010
  3. XYREM [Suspect]
     Indication: APNOEA
     Route: 048
     Dates: start: 201008, end: 2010

REACTIONS (1)
  - No adverse event [None]
